FAERS Safety Report 6399925-X (Version None)
Quarter: 2009Q4

REPORT INFORMATION
  Report Type: 
  Country: None (occurrence: None)
  Receive Date: 20091014
  Receipt Date: 20091007
  Transmission Date: 20100525
  Serious: Yes (Other)
  Sender: FDA-Public Use
  Company Number: US-AVENTIS-200918993US

PATIENT
  Sex: Male

DRUGS (2)
  1. LANTUS [Suspect]
     Route: 058
     Dates: start: 20070101
  2. METFORMIN HYDROCHLORIDE [Concomitant]
     Dosage: DOSE: 2 TABLETS ONCE DAILY IN AM

REACTIONS (1)
  - PROSTATE CANCER [None]
